FAERS Safety Report 5730989-X (Version None)
Quarter: 2008Q2

REPORT INFORMATION
  Report Type: 
  Country: None (occurrence: None)
  Receive Date: 20080505
  Receipt Date: 20080421
  Transmission Date: 20081010
  Serious: Yes (Hospitalization)
  Sender: FDA-Public Use
  Company Number: 233736J08USA

PATIENT
  Age: 44 Year
  Sex: Female

DRUGS (2)
  1. REBIF [Suspect]
     Indication: MULTIPLE SCLEROSIS
     Dosage: 44 MCG, 3 IN 1 WEEKS, SUBCUTANEOUS
     Route: 058
     Dates: start: 20070613, end: 20080416
  2. ANTIHYPERTENSIVE (ANTIHYPERTENSIVES) [Concomitant]

REACTIONS (5)
  - BLOOD PRESSURE INCREASED [None]
  - BRONCHITIS [None]
  - INFLUENZA [None]
  - INJECTION SITE PAIN [None]
  - NASOPHARYNGITIS [None]
